FAERS Safety Report 5645884-4 (Version None)
Quarter: 2008Q1

REPORT INFORMATION
  Report Type: 
  Country: None (occurrence: None)
  Receive Date: 20080229
  Receipt Date: 20080220
  Transmission Date: 20080703
  Serious: Yes (Death)
  Sender: FDA-Public Use
  Company Number: JP-PFIZER INC-2008008902

PATIENT
  Sex: Female
  Weight: 46 kg

DRUGS (9)
  1. ZOLOFT [Suspect]
     Route: 048
     Dates: start: 20080108, end: 20080118
  2. DOGMATYL [Concomitant]
     Route: 048
  3. LITHIUM CARBONATE [Concomitant]
     Route: 048
  4. TOLEDOMIN [Concomitant]
     Route: 048
  5. GASMOTIN [Concomitant]
     Route: 048
  6. ALOTEC [Concomitant]
     Route: 048
  7. NITRAZEPAM [Concomitant]
     Route: 048
     Dates: end: 20080118
  8. PANTOSIN [Concomitant]
     Route: 048
  9. ALL OTHER THERAPEUTIC PRODUCTS [Concomitant]
     Route: 048

REACTIONS (1)
  - SEPTIC SHOCK [None]
